FAERS Safety Report 6006559-5 (Version None)
Quarter: 2008Q4

REPORT INFORMATION
  Report Type: 
  Country: None (occurrence: None)
  Receive Date: 20081217
  Receipt Date: 20081208
  Transmission Date: 20090506
  Serious: Yes (Other)
  Sender: FDA-Public Use
  Company Number: AU-JNJCH-2008057148

PATIENT
  Age: 26 Year
  Sex: Female

DRUGS (2)
  1. CODRAL COUGH, COLD + FLU DAY + NIGHT (DAY) [Suspect]
     Indication: NASOPHARYNGITIS
     Dosage: TEXT:ONE NIGHT CAPLET AND ONE DAY CAPLET
     Route: 048
     Dates: start: 20081206, end: 20081207
  2. CODRAL COUGH, COLD + FLU DAY + NIGHT (NIGHT) [Suspect]
     Indication: NASOPHARYNGITIS
     Dosage: TEXT:1 CAPLET ONCE
     Route: 048
     Dates: start: 20081206, end: 20081206

REACTIONS (2)
  - ROAD TRAFFIC ACCIDENT [None]
  - SOMNOLENCE [None]
